FAERS Safety Report 5730853-6 (Version None)
Quarter: 2008Q2

REPORT INFORMATION
  Report Type: 
  Country: None (occurrence: None)
  Receive Date: 20080507
  Receipt Date: 20080425
  Transmission Date: 20081010
  Serious: Yes (Other)
  Sender: FDA-Public Use
  Company Number: US-PFIZER INC-2008035353

PATIENT
  Sex: Female
  Weight: 52.2 kg

DRUGS (4)
  1. DILANTIN [Suspect]
     Indication: CONVULSION
     Dosage: TEXT:DAILY
  2. DILANTIN [Suspect]
     Dosage: TEXT:DAILY EVERY DAY
  3. SYNTHROID [Concomitant]
  4. TOPAMAX [Concomitant]

REACTIONS (4)
  - ALLERGIC COUGH [None]
  - DRUG LEVEL FLUCTUATING [None]
  - PAIN IN EXTREMITY [None]
  - WEIGHT DECREASED [None]
